FAERS Safety Report 10336720 (Version 1)
Quarter: 2014Q3

REPORT INFORMATION
  Report Type: Spontaneous
  Country: US (occurrence: US)
  Receive Date: 20140723
  Receipt Date: 20140723
  Transmission Date: 20150326
  Serious: No
  Sender: FDA-Public Use
  Company Number: US-GALDERMA-US13001987

PATIENT
  Age: 69 Year
  Sex: Female

DRUGS (7)
  1. ORACEA [Suspect]
     Active Substance: DOXYCYCLINE
     Route: 048
     Dates: start: 2011, end: 201209
  2. ORACEA [Suspect]
     Active Substance: DOXYCYCLINE
     Indication: ROSACEA
     Route: 048
     Dates: start: 20130615, end: 20130618
  3. DERMADOCTOR CALM AND CORRECT FOR ROSACEA [Concomitant]
     Route: 061
     Dates: start: 2005
  4. DOVE SENSITIVE SKIN BAR [Concomitant]
     Indication: THERAPEUTIC SKIN CARE TOPICAL
     Route: 061
  5. SKIN SERUM [Concomitant]
     Route: 061
  6. WITCH HAZEL. [Concomitant]
     Active Substance: WITCH HAZEL
     Indication: ROSACEA
     Route: 061
  7. ORACEA [Suspect]
     Active Substance: DOXYCYCLINE
     Route: 048
     Dates: end: 20130607

REACTIONS (3)
  - Lacrimation increased [Recovered/Resolved]
  - Skin burning sensation [Recovered/Resolved]
  - Pruritus [Recovered/Resolved]

NARRATIVE: CASE EVENT DATE: 201209
